FAERS Safety Report 8385976-2 (Version None)
Quarter: 2012Q2

REPORT INFORMATION
  Report Type: 
  Country: None (occurrence: None)
  Receive Date: 20120523
  Receipt Date: 20120515
  Transmission Date: 20120825
  Serious: Yes (Hospitalization)
  Sender: FDA-Public Use
  Company Number: DSA_57336_2012

PATIENT
  Age: 66 Year
  Sex: Male

DRUGS (8)
  1. PANTOPRAZOLE SODIUM [Suspect]
     Indication: DIVERTICULITIS
     Dosage: (40 MG QD INTRAVENOUS (NOT OTHERWISE SPECIFIED))
     Route: 042
     Dates: start: 20120221, end: 20120223
  2. AMOXICILLIN AND CLAVULANATE POTASSIUM [Suspect]
     Indication: DIVERTICULITIS
     Dosage: (4.4 G QD INTRAVENOUS (NOT OTHERWISE SPECIFIED))
     Route: 042
     Dates: start: 20120221, end: 20120226
  3. FLAGYL [Suspect]
     Indication: DIVERTICULITIS
     Dosage: (1 G QD INTRAVENOUS (NOT OTHERWISE SPECIFIED))
     Route: 042
     Dates: start: 20120224, end: 20120225
  4. METRONIDAZOLE [Suspect]
     Indication: DIVERTICULITIS
     Dosage: (1 G QD INTRAVENOUS (NOT OTHERWISE SPECIFIED)), (DF ORAL)
     Route: 042
     Dates: start: 20120221, end: 20120222
  5. METRONIDAZOLE [Suspect]
     Indication: DIVERTICULITIS
     Dosage: (1 G QD INTRAVENOUS (NOT OTHERWISE SPECIFIED)), (DF ORAL)
     Route: 042
     Dates: start: 20120224, end: 20120225
  6. NOVALGIN /06276704/ (NOVALGIN-METAMIZOLE SODIUM) (NOT SPECIFIED) [Suspect]
     Indication: DIVERTICULITIS
     Dosage: (4 G QD INTRAVENOUS (NOT OTHERWISE SPECIFIED))
     Route: 042
     Dates: start: 20120221, end: 20120223
  7. FRAGMIN [Concomitant]
  8. CIPROFLOXACIN HYDROCHLORIDE [Suspect]
     Indication: DIVERTICULITIS
     Dosage: (1 G QD ORAL)
     Route: 048
     Dates: start: 20120222, end: 20120226

REACTIONS (2)
  - RASH ERYTHEMATOUS [None]
  - PRURITUS [None]
